FAERS Safety Report 5824659-7 (Version None)
Quarter: 2008Q3

REPORT INFORMATION
  Report Type: 
  Country: None (occurrence: None)
  Receive Date: 20080728
  Receipt Date: 20080715
  Transmission Date: 20090109
  Serious: Yes (Other)
  Sender: FDA-Public Use
  Company Number: DE-ELI_LILLY_AND_COMPANY-DE200807003025

PATIENT
  Age: 33 Year
  Sex: Male

DRUGS (1)
  1. STRATTERA [Suspect]
     Indication: ATTENTION DEFICIT/HYPERACTIVITY DISORDER
     Dosage: 40 MG, DAILY (1/D)
     Route: 048

REACTIONS (4)
  - ABNORMAL BEHAVIOUR [None]
  - ARRHYTHMIA [None]
  - ATTENTION DEFICIT/HYPERACTIVITY DISORDER [None]
  - INSOMNIA [None]
